FAERS Safety Report 8774196 (Version 1)
Quarter: 2012Q4

REPORT INFORMATION
  Report Type: 
  Country: US (occurrence: US)
  Receive Date: 20120907
  Receipt Date: 20120907
  Transmission Date: 20130627
  Serious: No
  Sender: FDA-Public Use
  Company Number: US-ASTRAZENECA-2012SE60344

PATIENT
  Age: 53 Year
  Sex: Female
  Weight: 93 kg

DRUGS (12)
  1. TOPROL XL [Suspect]
     Indication: HYPERTENSION
     Route: 048
  2. PRILOSEC [Suspect]
     Indication: GASTROOESOPHAGEAL REFLUX DISEASE
     Route: 048
  3. SEROQUEL XR [Suspect]
     Indication: BIPOLAR DISORDER
     Route: 048
     Dates: start: 2006
  4. SEROQUEL XR [Suspect]
     Indication: BIPOLAR DISORDER
     Route: 048
  5. NOVOLOG [Concomitant]
     Indication: BLOOD GLUCOSE INCREASED
  6. LEVEMIR [Concomitant]
     Indication: DIABETES MELLITUS
  7. HTZ [Concomitant]
     Indication: HYPERTENSION
  8. PROLIXIN [Concomitant]
     Dosage: BIMO
  9. KLONOPIN [Concomitant]
  10. DITHIAZIDE [Concomitant]
  11. NOLVANE [Concomitant]
  12. LOPID [Concomitant]
     Indication: BLOOD CHOLESTEROL ABNORMAL

REACTIONS (2)
  - Diabetes mellitus [Unknown]
  - Blood cholesterol increased [Unknown]
